FAERS Safety Report 13737263 (Version 1)
Quarter: 2017Q3

REPORT INFORMATION
  Report Type: Spontaneous
  Country: JP (occurrence: JP)
  Receive Date: 20170710
  Receipt Date: 20170710
  Transmission Date: 20171127
  Serious: Yes (Other)
  Sender: FDA-Public Use
  Company Number: JP-PFIZER INC-2017297088

PATIENT
  Age: 40 Year
  Sex: Male

DRUGS (1)
  1. CEFTRIAXONE SODIUM. [Suspect]
     Active Substance: CEFTRIAXONE SODIUM
     Indication: LEPTOSPIROSIS
     Dosage: 2 G, 1X/DAY

REACTIONS (3)
  - Condition aggravated [Recovered/Resolved]
  - Jarisch-Herxheimer reaction [Recovered/Resolved]
  - Pyrexia [Recovered/Resolved]
